FAERS Safety Report 6334769-6 (Version None)
Quarter: 2009Q3

REPORT INFORMATION
  Report Type: 
  Country: None (occurrence: None)
  Receive Date: 20090831
  Receipt Date: 20090827
  Transmission Date: 20100115
  Serious: Yes (Death)
  Sender: FDA-Public Use
  Company Number: PHHO2009FR10638

PATIENT
  Sex: Male

DRUGS (2)
  1. RAD 666 RAD+TAB [Suspect]
     Indication: RENAL CANCER METASTATIC
     Dosage: UNK
     Route: 048
  2. CORTICOSTEROID NOS [Concomitant]

REACTIONS (1)
  - DEATH [None]
